FAERS Safety Report 14425529 (Version 1)
Quarter: 2018Q1

REPORT INFORMATION
  Report Type: Spontaneous
  Country: US (occurrence: US)
  Receive Date: 20180122
  Receipt Date: 20180122
  Transmission Date: 20180509
  Serious: Yes (Other)
  Sender: FDA-Public Use
  Company Number: None

PATIENT
  Age: 33 Year
  Sex: Female
  Weight: 58.5 kg

DRUGS (3)
  1. BUPRENORPHINE NALOXONE 8MG [Suspect]
     Active Substance: BUPRENORPHINE\NALOXONE
     Indication: DRUG DEPENDENCE
     Route: 060
     Dates: start: 20180112, end: 20180120
  2. DAILY VITAMIN [Concomitant]
     Active Substance: VITAMINS
  3. BUPRENORPHINE NALOXONE 8MG [Suspect]
     Active Substance: BUPRENORPHINE\NALOXONE
     Indication: DRUG WITHDRAWAL SYNDROME
     Route: 060
     Dates: start: 20180112, end: 20180120

REACTIONS (11)
  - Constipation [None]
  - Bedridden [None]
  - Migraine [None]
  - Insomnia [None]
  - Impaired work ability [None]
  - Insurance issue [None]
  - Product substitution issue [None]
  - Decreased appetite [None]
  - Movement disorder [None]
  - Poor quality sleep [None]
  - Mental disorder [None]

NARRATIVE: CASE EVENT DATE: 20180112
